FAERS Safety Report 13057073 (Version 1)
Quarter: 2016Q4

REPORT INFORMATION
  Report Type: Spontaneous
  Country: US (occurrence: US)
  Receive Date: 20161222
  Receipt Date: 20161222
  Transmission Date: 20170207
  Serious: No
  Sender: FDA-Public Use
  Company Number: US-ASTRAZENECA-2016SF29978

PATIENT

DRUGS (3)
  1. SYMBICORT [Suspect]
     Active Substance: BUDESONIDE\FORMOTEROL FUMARATE DIHYDRATE
     Route: 055
  2. OXYGEN. [Concomitant]
     Active Substance: OXYGEN
  3. NEBULIZERS [Concomitant]

REACTIONS (3)
  - Dyspnoea [Unknown]
  - Back pain [Unknown]
  - Condition aggravated [Unknown]
